FAERS Safety Report 14304461 (Version 1)
Quarter: 2017Q4

REPORT INFORMATION
  Report Type: Spontaneous
  Country: JP (occurrence: JP)
  Receive Date: 20171219
  Receipt Date: 20171219
  Transmission Date: 20180321
  Serious: Yes (Hospitalization)
  Sender: FDA-Public Use
  Company Number: JP-OTSUKA-011187

PATIENT
  Age: 70 Year
  Sex: Female

DRUGS (8)
  1. ABILIFY [Suspect]
     Active Substance: ARIPIPRAZOLE
     Dosage: 12 MG, QD
     Route: 048
     Dates: start: 20100911, end: 20100916
  2. ABILIFY [Suspect]
     Active Substance: ARIPIPRAZOLE
     Indication: DEPRESSION
     Dosage: 6 MG, QD
     Route: 048
     Dates: start: 20100821, end: 20100910
  3. AMOXAN [Suspect]
     Active Substance: AMOXAPINE
     Indication: DEPRESSION
     Dosage: 5 MG, BID
     Route: 048
     Dates: start: 2010, end: 20100916
  4. BROTIZOLAM [Concomitant]
     Active Substance: BROTIZOLAM
     Indication: DEPRESSION
     Dosage: 0.25 MG, QD
     Route: 048
     Dates: start: 2010, end: 20100916
  5. ASASION [Concomitant]
     Indication: DEPRESSION
     Dosage: 0.25 MG, QD
     Route: 048
     Dates: start: 2010, end: 20100916
  6. OPC-12759 [Suspect]
     Active Substance: REBAMIPIDE
     Dosage: 6MG FROM 21AUG-10SEP10 (21D)  12MG FROM 11SEP10-16SE10 (6D)  FORM: TABLET
  7. GASMOTIN [Concomitant]
     Active Substance: MOSAPRIDE CITRATE
     Indication: DEPRESSION
     Dosage: 5 MG, BID
     Route: 048
     Dates: start: 2010, end: 20100916
  8. TRIAZOLAM. [Concomitant]
     Active Substance: TRIAZOLAM
     Dosage: TRIAZOLAM TABLET
     Dates: end: 20100916

REACTIONS (2)
  - Loss of consciousness [None]
  - Inappropriate antidiuretic hormone secretion [Recovered/Resolved]

NARRATIVE: CASE EVENT DATE: 20100917
